FAERS Safety Report 16100831 (Version 1)
Quarter: 2019Q1

REPORT INFORMATION
  Report Type: Spontaneous
  Country: HR (occurrence: HR)
  Receive Date: 20190321
  Receipt Date: 20190321
  Transmission Date: 20190418
  Serious: Yes (Other)
  Sender: FDA-Public Use
  Company Number: HR-BAYER-2019-053671

PATIENT
  Sex: Female

DRUGS (2)
  1. RAMIPRIL. [Concomitant]
     Active Substance: RAMIPRIL
     Indication: HYPERTENSION
     Dosage: 5 MG, UNK
  2. ASPIRIN PROTECT 100 MG [Suspect]
     Active Substance: ASPIRIN
     Indication: ATRIAL FIBRILLATION

REACTIONS (8)
  - Fall [None]
  - Skin abrasion [None]
  - Asthenia [None]
  - Hip fracture [None]
  - Coronary artery occlusion [None]
  - Transient ischaemic attack [None]
  - Haematoma [None]
  - Chest pain [None]

NARRATIVE: CASE EVENT DATE: 201812
